FAERS Safety Report 4708450-0 (Version None)
Quarter: 2005Q3

REPORT INFORMATION
  Report Type: 
  Country: None (occurrence: None)
  Receive Date: 20050705
  Receipt Date: 20050621
  Transmission Date: 20060218
  Serious: Yes (Hospitalization)
  Sender: FDA-Public Use
  Company Number: HQWYE620422JUN05

PATIENT
  Age: 39 Year
  Sex: Male

DRUGS (10)
  1. MINOMYCIN (MINOCYCLINE, INJECTION) [Suspect]
     Indication: PYREXIA
     Dosage: 200 MG DAILY INTRAVENOUS
     Route: 042
     Dates: start: 20031107
  2. AMIKACIN SULFATE [Suspect]
     Indication: PYREXIA
     Dosage: 400 MG PER DAY INTRAVENOUS
     Route: 042
     Dates: start: 20031018
  3. AMIKACIN SULFATE [Suspect]
     Indication: PYREXIA
     Dosage: 400 MG PER DAY INTRAVENOUS
     Route: 042
     Dates: start: 20031110
  4. CEFTAZIDIME SODIUM [Suspect]
     Indication: PYREXIA
     Dosage: 4 GRAMS PER DAY INTRAVENOUS
     Route: 042
     Dates: start: 20031107
  5. LOXOPROFEN SODIUM (LOXOPROFEN SODIUM,) [Suspect]
     Indication: PYREXIA
     Dosage: 60 MG AS NEEDED ORAL
     Route: 048
     Dates: start: 20030926
  6. MEROPENEM (MEROPENEM,) [Suspect]
     Indication: PYREXIA
     Dosage: 2 GRAMS PER DAY INTRAVENOUS
     Route: 042
     Dates: start: 20031020
  7. MEROPENEM (MEROPENEM,) [Suspect]
     Indication: PYREXIA
     Dosage: 2 GRAMS PER DAY INTRAVENOUS
     Route: 042
     Dates: start: 20031110
  8. ANTIFUNGAL (ANTIFUNGAL) [Suspect]
     Indication: PYREXIA
     Dosage: 150 MG PER DAY INTRAVENOUS
     Route: 042
     Dates: start: 20031020
  9. ANTIFUNGAL (ANTIFUNGAL) [Suspect]
     Indication: PYREXIA
     Dosage: 150 MG PER DAY INTRAVENOUS
     Route: 042
     Dates: start: 20031110
  10. FAMOTIDINE [Concomitant]

REACTIONS (13)
  - ALANINE AMINOTRANSFERASE DECREASED [None]
  - ALANINE AMINOTRANSFERASE INCREASED [None]
  - ASPARTATE AMINOTRANSFERASE INCREASED [None]
  - BLOOD ALKALINE PHOSPHATASE INCREASED [None]
  - BLOOD LACTATE DEHYDROGENASE DECREASED [None]
  - BLOOD LACTATE DEHYDROGENASE INCREASED [None]
  - BLOOD POTASSIUM INCREASED [None]
  - BLOOD SODIUM DECREASED [None]
  - CONDITION AGGRAVATED [None]
  - ELECTROLYTE IMBALANCE [None]
  - GAMMA-GLUTAMYLTRANSFERASE INCREASED [None]
  - GASTRITIS [None]
  - HEPATIC FUNCTION ABNORMAL [None]
